FAERS Safety Report 22651896 (Version 1)
Quarter: 2023Q2

REPORT INFORMATION
  Report Type: Report from Study
  Country: US (occurrence: US)
  Receive Date: 20230628
  Receipt Date: 20230628
  Transmission Date: 20230722
  Serious: Yes (Hospitalization, Other)
  Sender: FDA-Public Use
  Company Number: US-BAUSCH-BL-2023-009671

PATIENT
  Age: 56 Year
  Sex: Male
  Weight: 96.248 kg

DRUGS (19)
  1. XIFAXAN [Suspect]
     Active Substance: RIFAXIMIN
     Indication: Hepatic encephalopathy
     Route: 048
     Dates: start: 2013
  2. NEULASTA [Suspect]
     Active Substance: PEGFILGRASTIM
     Indication: Follicular lymphoma
     Route: 065
  3. NEULASTA [Suspect]
     Active Substance: PEGFILGRASTIM
     Indication: Recurrent cancer
  4. CHOLESTYRAMINE [Concomitant]
     Active Substance: CHOLESTYRAMINE
     Indication: Product used for unknown indication
     Dosage: 4 GM PACKET 1 PACKET MIXED WITH WATER OR NON-CARBONATED DRINK
     Route: 048
  5. LOMOTIL [Concomitant]
     Active Substance: ATROPINE SULFATE\DIPHENOXYLATE HYDROCHLORIDE
     Indication: Diarrhoea
     Dosage: 2.5-0.025 MG, AS NEEDED
     Route: 048
  6. SPIRONOLACTONE [Concomitant]
     Active Substance: SPIRONOLACTONE
     Indication: Chronic hepatitis C
     Route: 048
  7. METOPROLOL SUCCINATE [Concomitant]
     Active Substance: METOPROLOL SUCCINATE
     Indication: Chronic hepatitis C
     Dosage: 24 HOUR SPRINKLE
     Route: 048
  8. LACTULOSE [Concomitant]
     Active Substance: LACTULOSE
     Indication: Hepatic encephalopathy
     Dosage: 10 GM/15ML
     Route: 048
  9. LASIX [Concomitant]
     Active Substance: FUROSEMIDE
     Indication: Chronic hepatitis C
     Route: 048
  10. ENTECAVIR [Concomitant]
     Active Substance: ENTECAVIR
     Indication: Chronic hepatitis C
     Route: 048
  11. CHLORDIAZEPOXIDE HYDROCHLORIDE [Concomitant]
     Active Substance: CHLORDIAZEPOXIDE HYDROCHLORIDE
     Indication: Product used for unknown indication
     Route: 048
  12. ZANAFLEX [Concomitant]
     Active Substance: TIZANIDINE HYDROCHLORIDE
     Indication: Product used for unknown indication
     Dosage: AS NEEDED
     Route: 048
  13. K DUR [Concomitant]
     Indication: Product used for unknown indication
     Dosage: NOTES: 25MEQ PRN
     Route: 048
  14. DIETARY SUPPLEMENT\HERBALS\MILK THISTLE [Concomitant]
     Active Substance: MILK THISTLE
     Indication: Product used for unknown indication
     Route: 048
  15. ALBUTEROL SULFATE [Concomitant]
     Active Substance: ALBUTEROL SULFATE
     Indication: Product used for unknown indication
     Dosage: (2.5 MG/3ML) 0.083%, NEBULIZATION SOLUTION, AS NEEDED
     Route: 055
  16. ALLOPURINOL [Concomitant]
     Active Substance: ALLOPURINOL
     Indication: Product used for unknown indication
     Dosage: PRN
     Route: 048
  17. ALBUTEROL SULFATE [Concomitant]
     Active Substance: ALBUTEROL SULFATE
     Indication: Product used for unknown indication
     Dosage: 108 (90 BASE) MCG/ACT AEROSOL SOLUTION 2 PUFFS AS NEEDED INHALATION EVERY 6 HRS
     Route: 055
  18. NITROGLYCERIN [Concomitant]
     Active Substance: NITROGLYCERIN
     Indication: Product used for unknown indication
     Dosage: 1 TABLET UNDER THE TONGUE AND ALLOW TO DISSOLVE AS NEEDED
     Route: 060
  19. SYMBICORT [Concomitant]
     Active Substance: BUDESONIDE\FORMOTEROL FUMARATE DIHYDRATE
     Indication: Product used for unknown indication
     Dosage: 160-4-5 MCG/ACT AEROSOL A PUFFS INHALATION TWICE A DAY
     Route: 055

REACTIONS (22)
  - Pneumonia [Unknown]
  - Confusional state [Unknown]
  - Weight decreased [Unknown]
  - Follicular lymphoma [Unknown]
  - Recurrent cancer [Unknown]
  - Body mass index increased [Unknown]
  - Platelet count decreased [Unknown]
  - Lymphadenopathy mediastinal [Unknown]
  - Blood calcium increased [Unknown]
  - Iron deficiency anaemia [Unknown]
  - Condition aggravated [Unknown]
  - Weight increased [Not Recovered/Not Resolved]
  - Globulins decreased [Unknown]
  - Mesenteric panniculitis [Unknown]
  - White blood cell count increased [Unknown]
  - Anorectal varices [Unknown]
  - Blood bilirubin increased [Unknown]
  - Hiatus hernia [Unknown]
  - Glomerular filtration rate decreased [Unknown]
  - Ascites [Unknown]
  - Fatigue [Unknown]
  - Dyspnoea [Unknown]

NARRATIVE: CASE EVENT DATE: 20130903
